FAERS Safety Report 7940414-6 (Version None)
Quarter: 2011Q4

REPORT INFORMATION
  Report Type: 
  Country: None (occurrence: None)
  Receive Date: 20111127
  Receipt Date: 20111116
  Transmission Date: 20120403
  Serious: Yes (Death)
  Sender: FDA-Public Use
  Company Number: US-CELGENEUS-163-21880-11091810

PATIENT
  Sex: Male

DRUGS (6)
  1. METOPROLOL TARTRATE [Concomitant]
     Indication: HYPERTENSION
     Dosage: 25
     Route: 065
  2. ACYCLOVIR [Concomitant]
     Indication: PROPHYLAXIS
     Dosage: 400 MILLIGRAM
     Route: 065
  3. ERTAPENEM [Concomitant]
     Indication: INFECTION
     Dosage: 1 GRAM
     Route: 065
  4. LANTUS [Concomitant]
     Indication: DIABETES MELLITUS
     Route: 065
  5. REVLIMID [Suspect]
     Indication: NON-HODGKIN'S LYMPHOMA
     Dosage: 20 MILLIGRAM
     Route: 048
     Dates: start: 20110714, end: 20110101
  6. LOVENOX [Concomitant]
     Dosage: 80 MILLIGRAM
     Route: 065

REACTIONS (1)
  - NON-HODGKIN'S LYMPHOMA [None]
